FAERS Safety Report 7244650-6 (Version None)
Quarter: 2011Q1

REPORT INFORMATION
  Report Type: 
  Country: None (occurrence: None)
  Receive Date: 20110125
  Receipt Date: 20101229
  Transmission Date: 20110831
  Serious: No
  Sender: FDA-Public Use
  Company Number: US-MYLANLABS-2010S1022181

PATIENT
  Age: 90 Year
  Sex: Female
  Weight: 54.43 kg

DRUGS (2)
  1. FELODIPINE [Suspect]
     Indication: BLOOD PRESSURE
     Route: 048
     Dates: start: 20070426
  2. XANAX [Concomitant]

REACTIONS (2)
  - DRUG EFFECT DECREASED [None]
  - HYPERTENSION [None]
